FAERS Safety Report 6448203-9 (Version None)
Quarter: 2009Q4

REPORT INFORMATION
  Report Type: 
  Country: None (occurrence: None)
  Receive Date: 20091120
  Receipt Date: 20091110
  Transmission Date: 20100525
  Serious: Yes (Hospitalization, Disabling, Other)
  Sender: FDA-Public Use
  Company Number: FR-PFIZER INC-2009280058

PATIENT
  Age: 65 Year
  Sex: Male
  Weight: 80 kg

DRUGS (3)
  1. IRINOTECAN HCL [Suspect]
     Indication: GLIOBLASTOMA
     Dosage: 250 MG
     Route: 042
     Dates: start: 20090803, end: 20090914
  2. PREDNISOLONE AND PREDNISOLONE STEAGLATE [Suspect]
     Indication: ANTIINFLAMMATORY THERAPY
     Dosage: UNK
     Route: 048
     Dates: start: 20090601
  3. BEVACIZUMAB [Suspect]
     Indication: GLIOBLASTOMA
     Dosage: 800 MG
     Route: 042
     Dates: start: 20090803, end: 20090914

REACTIONS (2)
  - GENERAL PHYSICAL CONDITION ABNORMAL [None]
  - HYPERGLYCAEMIA [None]
